FAERS Safety Report 6216017-0 (Version None)
Quarter: 2009Q2

REPORT INFORMATION
  Report Type: 
  Country: None (occurrence: None)
  Receive Date: 20090605
  Receipt Date: 20090526
  Transmission Date: 20091009
  Serious: Yes (Other)
  Sender: FDA-Public Use
  Company Number: PHHY2009US20825

PATIENT
  Age: 76 Year
  Sex: Female

DRUGS (1)
  1. ZOLEDRONIC ACID [Suspect]
     Indication: BREAST CANCER METASTATIC
     Dosage: UNK

REACTIONS (12)
  - ABSCESS DRAINAGE [None]
  - BONE FRAGMENTATION [None]
  - HYPOAESTHESIA FACIAL [None]
  - LOOSE TOOTH [None]
  - LYMPHADENOPATHY [None]
  - OEDEMA [None]
  - ORAL CAVITY FISTULA [None]
  - OSTEONECROSIS [None]
  - OSTEOSCLEROSIS [None]
  - PAIN [None]
  - SWELLING [None]
  - TOOTH EXTRACTION [None]
